FAERS Safety Report 9129358 (Version 2)
Quarter: 2013Q1

REPORT INFORMATION
  Report Type: Spontaneous
  Country: US (occurrence: US)
  Receive Date: 20130228
  Receipt Date: 20130318
  Transmission Date: 20140127
  Serious: No
  Sender: FDA-Public Use
  Company Number: US-ROXANE LABORATORIES, INC.-2013-RO-00317RO

PATIENT
  Age: 82 Year
  Sex: Male
  Weight: 68 kg

DRUGS (6)
  1. PREDNISONE [Suspect]
     Indication: COUGH
     Route: 048
     Dates: start: 20130124, end: 20130129
  2. FLUTICASONE PROPRIONATE [Concomitant]
     Route: 045
  3. TAMSULOSIN HCL [Concomitant]
     Indication: PROSTATOMEGALY
     Dosage: 0.4 MG
  4. NEXIUM DR [Concomitant]
     Dosage: 40 MG
  5. ADVAIR [Concomitant]
     Indication: CHRONIC OBSTRUCTIVE PULMONARY DISEASE
     Route: 055
  6. ADVAIR [Concomitant]
     Indication: ASTHMA

REACTIONS (1)
  - Therapeutic response unexpected [Recovered/Resolved]
